FAERS Safety Report 24992542 (Version 1)
Quarter: 2025Q1

REPORT INFORMATION
  Report Type: Report from Study
  Country: US (occurrence: US)
  Receive Date: 20250220
  Receipt Date: 20250220
  Transmission Date: 20250409
  Serious: Yes (Other)
  Sender: ABBVIE
  Company Number: US-ABBVIE-6135732

PATIENT
  Age: 47 Year
  Sex: Female

DRUGS (3)
  1. HUMIRA [Suspect]
     Active Substance: ADALIMUMAB
     Indication: Rheumatoid arthritis
     Route: 058
     Dates: start: 20180101
  2. SLEEP AID (DIPHENHYDRAMINE HYDROCHLORIDE) [Concomitant]
     Active Substance: DIPHENHYDRAMINE HYDROCHLORIDE
     Indication: Sleep disorder
     Dates: start: 20190101
  3. NORCO [Concomitant]
     Active Substance: ACETAMINOPHEN\HYDROCODONE BITARTRATE
     Indication: Pain
     Dates: start: 2015

REACTIONS (7)
  - Intestinal perforation [Unknown]
  - Nail discolouration [Not Recovered/Not Resolved]
  - Onychoclasis [Unknown]
  - Onychalgia [Unknown]
  - Intestinal perforation [Recovered/Resolved]
  - Blister [Unknown]
  - Skin ulcer [Unknown]

NARRATIVE: CASE EVENT DATE: 20190101
